FAERS Safety Report 4618680-4 (Version None)
Quarter: 2005Q1

REPORT INFORMATION
  Report Type: 
  Country: None (occurrence: None)
  Receive Date: 20050324
  Receipt Date: 20050303
  Transmission Date: 20050727
  Serious: Yes (Hospitalization)
  Sender: FDA-Public Use
  Company Number: USA050392318

PATIENT
  Sex: Male
  Weight: 83 kg

DRUGS (4)
  1. ZYPREXA [Suspect]
     Indication: SCHIZOPHRENIA, PARANOID TYPE
     Dosage: 40 MG
     Dates: start: 19950101
  2. GLYCINE HCL [Concomitant]
  3. NIACIN [Concomitant]
  4. ZOLOFT [Concomitant]

REACTIONS (3)
  - ASTHENIA [None]
  - PRESCRIBED OVERDOSE [None]
  - WEIGHT INCREASED [None]
